FAERS Safety Report 4381693-4 (Version None)
Quarter: 2004Q2

REPORT INFORMATION
  Report Type: 
  Country: None (occurrence: None)
  Receive Date: 20040615
  Receipt Date: 20040520
  Transmission Date: 20050107
  Serious: Yes (Death)
  Sender: FDA-Public Use
  Company Number: US-JNJFOC-20040505069

PATIENT
  Age: 75 Year
  Sex: Male

DRUGS (12)
  1. INFLIXIMAB (INFLIXIMAB, RECOMBINANT) LYOPHILIZED POWDER [Suspect]
     Indication: RHEUMATOID ARTHRITIS
     Dosage: INTRAVENOUS
     Route: 042
     Dates: start: 20010201
  2. INFLIXIMAB (INFLIXIMAB, RECOMBINANT) LYOPHILIZED POWDER [Suspect]
     Indication: RHEUMATOID ARTHRITIS
     Dosage: INTRAVENOUS
     Route: 042
     Dates: start: 20030616
  3. METHOTREXATE [Concomitant]
  4. GLYBURIDE [Concomitant]
  5. LASIX [Concomitant]
  6. COREG [Concomitant]
  7. ZESTRIL [Concomitant]
  8. ASPIRIN [Concomitant]
  9. ZOCOR [Concomitant]
  10. FOLIC ACID [Concomitant]
  11. MULTI-VITAMIN [Concomitant]
  12. PROCRIT (ERYTHROPOIETIN) [Concomitant]

REACTIONS (1)
  - CARDIAC DISORDER [None]
